FAERS Safety Report 10506172 (Version 2)
Quarter: 2014Q4

REPORT INFORMATION
  Report Type: Spontaneous
  Country: JP (occurrence: JP)
  Receive Date: 20141009
  Receipt Date: 20141106
  Transmission Date: 20150528
  Serious: Yes (Life-Threatening, Hospitalization, Other)
  Sender: FDA-Public Use
  Company Number: JP-009507513-1410JPN002814

PATIENT
  Age: 82 Year
  Sex: Male
  Weight: 64 kg

DRUGS (17)
  1. ULTIVA [Suspect]
     Active Substance: REMIFENTANIL HYDROCHLORIDE
     Indication: ANALGESIC THERAPY
     Dosage: UNK, 100 MICORGRAM/H-1 G/ H , CONTINUOUS INTRAVENOUS ADMINISTRATION
     Route: 042
     Dates: start: 20140606
  2. ESLAX [Suspect]
     Active Substance: ROCURONIUM BROMIDE
     Dosage: 10 MG, FIVE TIMES A DAY, TOTAL DAILY DOSE 50 MG
     Route: 042
     Dates: start: 20140606, end: 20140606
  3. EPHEDRINE HYDROCHLORIDE [Suspect]
     Active Substance: EPHEDRINE HYDROCHLORIDE
     Indication: BLOOD PRESSURE INCREASED
     Dosage: 8 MG, QD
     Route: 042
     Dates: start: 20140606
  4. FENTANYL CITRATE. [Suspect]
     Active Substance: FENTANYL CITRATE
     Dosage: 50 MICROGRAM, QD, DIVIDED DOSE FREQUENCY UNKNOWN
     Route: 042
     Dates: start: 20140606, end: 20140613
  5. ESLAX [Suspect]
     Active Substance: ROCURONIUM BROMIDE
     Indication: NEUROMUSCULAR BLOCKADE REVERSAL
     Dosage: 50 MG, QD
     Route: 042
     Dates: start: 20140606, end: 20140606
  6. BRIDION [Suspect]
     Active Substance: SUGAMMADEX
     Dosage: 150 MG, QD
     Route: 042
     Dates: start: 20140606, end: 20140606
  7. ANAPEINE [Suspect]
     Active Substance: ROPIVACAINE HYDROCHLORIDE
     Indication: ANALGESIC THERAPY
     Dosage: 200 ML, QOD
     Route: 008
     Dates: start: 20140606, end: 20140607
  8. EPHEDRINE HYDROCHLORIDE [Suspect]
     Active Substance: EPHEDRINE HYDROCHLORIDE
     Dosage: 4 MG, TID
     Route: 042
     Dates: start: 20140606
  9. XYLOCAINE [Suspect]
     Active Substance: LIDOCAINE HYDROCHLORIDE
     Dosage: 3 ML, QD
     Route: 008
     Dates: start: 20140606
  10. FENTANYL CITRATE. [Suspect]
     Active Substance: FENTANYL CITRATE
     Dosage: 1 MICROGRAM, QOD, CONTINUOUS EPIDURAL ADMINISTRATION
     Dates: start: 20140606, end: 20140613
  11. DIPRIVAN [Suspect]
     Active Substance: PROPOFOL
     Indication: ANALGESIC THERAPY
     Dosage: 1590 MICROGRAM, QD, CONTINUOUS INTRAVENOUS ADMINISTRATION
     Route: 042
     Dates: start: 20140606
  12. FAMOTIDINE. [Concomitant]
     Active Substance: FAMOTIDINE
     Indication: PREMEDICATION
     Dosage: 20 MG, QD
     Route: 042
     Dates: start: 20140606, end: 20140606
  13. FENTANYL CITRATE. [Suspect]
     Active Substance: FENTANYL CITRATE
     Dosage: 50 MICROGRAM, QD, DIVIDED DOSE FREQUENCY UNKNOWN
     Route: 008
     Dates: start: 20140606, end: 20140613
  14. CEFMETAZOLE SODIUM [Suspect]
     Active Substance: CEFMETAZOLE SODIUM
     Indication: PROPHYLAXIS
     Dosage: 1 G, BID
     Route: 041
     Dates: start: 20140606
  15. PHYSIO 140 [Concomitant]
     Dosage: UNK, DAILY DOSE UNKNOWN
     Route: 065
  16. XYLOCAINE [Suspect]
     Active Substance: LIDOCAINE HYDROCHLORIDE
     Indication: ANALGESIC THERAPY
     Dosage: 5 ML, QD, DIVIDED DOSE FREQUENCY UNKNOWN
     Route: 008
     Dates: start: 20140606
  17. FENTANYL CITRATE. [Suspect]
     Active Substance: FENTANYL CITRATE
     Indication: ANALGESIC THERAPY
     Dosage: 20 MICROGRAM, QD, DIVIDED DOSE FREQUENCY UNKNOWN
     Route: 042
     Dates: start: 20140606, end: 20140613

REACTIONS (4)
  - Atrioventricular block second degree [Recovered/Resolved]
  - Cardiac arrest [Recovered/Resolved]
  - Chills [Recovered/Resolved]
  - Nausea [Recovered/Resolved]

NARRATIVE: CASE EVENT DATE: 20140606
